FAERS Safety Report 7833396-9 (Version None)
Quarter: 2011Q4

REPORT INFORMATION
  Report Type: 
  Country: None (occurrence: None)
  Receive Date: 20111020
  Receipt Date: 20111007
  Transmission Date: 20120403
  Serious: Yes (Death)
  Sender: FDA-Public Use
  Company Number: FK201102201

PATIENT
  Age: 52 Year
  Sex: Female

DRUGS (4)
  1. SEDATIVE HYPNOTICS [Concomitant]
  2. MIRTAZAPINE [Concomitant]
  3. QUETIAPINE FUMARATE [Concomitant]
  4. HALOPERIDOL [Suspect]
     Indication: AGGRESSION
     Dosage: UNKNOWN, INTRAVENOUS (NOT OTHERWISE SPECIFIED)
     Route: 042

REACTIONS (2)
  - BLOOD LACTIC ACID INCREASED [None]
  - NEUROLEPTIC MALIGNANT SYNDROME [None]
